FAERS Safety Report 6753928-1 (Version None)
Quarter: 2010Q2

REPORT INFORMATION
  Report Type: 
  Country: None (occurrence: None)
  Receive Date: 20100603
  Receipt Date: 20100526
  Transmission Date: 20101027
  Serious: Yes (Hospitalization, Disabling)
  Sender: FDA-Public Use
  Company Number: A0787071A

PATIENT
  Age: 54 Year
  Sex: Male
  Weight: 95.5 kg

DRUGS (10)
  1. AVANDIA [Suspect]
     Dates: start: 20040805, end: 20070810
  2. AVANDAMET [Suspect]
     Dates: start: 20050219
  3. NEXIUM [Concomitant]
  4. TOPROL-XL [Concomitant]
  5. ZOCOR [Concomitant]
  6. ALTACE [Concomitant]
  7. LASIX [Concomitant]
  8. NEURONTIN [Concomitant]
  9. SPIRONOLACTONE [Concomitant]
  10. GLUCOPHAGE [Concomitant]

REACTIONS (3)
  - ISCHAEMIC CARDIOMYOPATHY [None]
  - MYOCARDIAL INFARCTION [None]
  - PAIN [None]
